FAERS Safety Report 4280914-6 (Version None)
Quarter: 2004Q1

REPORT INFORMATION
  Report Type: 
  Country: None (occurrence: None)
  Receive Date: 20040129
  Receipt Date: 20040113
  Transmission Date: 20041129
  Serious: Yes (Hospitalization)
  Sender: FDA-Public Use
  Company Number: US-GLAXOSMITHKLINE-B0319950A

PATIENT
  Age: 37 Year
  Sex: Female

DRUGS (2)
  1. WELLBUTRIN [Suspect]
     Dosage: 23G UNKNOWN
     Route: 048
  2. ETHANOL [Suspect]
     Route: 065

REACTIONS (3)
  - ALCOHOL INTERACTION [None]
  - OVERDOSE [None]
  - STATUS EPILEPTICUS [None]
